FAERS Safety Report 16474111 (Version 2)
Quarter: 2019Q3

REPORT INFORMATION
  Report Type: Spontaneous
  Country: US (occurrence: US)
  Receive Date: 20190625
  Receipt Date: 20190731
  Transmission Date: 20191004
  Serious: No
  Sender: FDA-Public Use
  Company Number: US-PFIZER INC-2019004018

PATIENT
  Age: 48 Year
  Sex: Male

DRUGS (1)
  1. LYRICA [Suspect]
     Active Substance: PREGABALIN
     Indication: PAIN
     Dosage: 150 MG, AS NEEDED [1 CAPSULE TWICE A DAY (BID) AS NEEDED]
     Route: 048

REACTIONS (3)
  - Off label use [Unknown]
  - Arthritis [Unknown]
  - Product use issue [Unknown]
